FAERS Safety Report 9531460 (Version 1)
Quarter: 2013Q3

REPORT INFORMATION
  Report Type: Spontaneous
  Country: NL (occurrence: None)
  Receive Date: 20130916
  Receipt Date: 20130916
  Transmission Date: 20140515
  Serious: Yes (Life-Threatening, Hospitalization)
  Sender: FDA-Public Use
  Company Number: 2013AP007876

PATIENT
  Age: 68 Year
  Sex: Male

DRUGS (1)
  1. VERAPAMIL [Suspect]
     Dosage: 6700 MG; UNKNOWN; PO; TOTAL
     Route: 048

REACTIONS (10)
  - Toxicity to various agents [None]
  - Suicide attempt [None]
  - Vasoplegia syndrome [None]
  - Shock [None]
  - Bradycardia [None]
  - Ventricular fibrillation [None]
  - Renal failure acute [None]
  - Somnolence [None]
  - Metabolic acidosis [None]
  - Renal failure acute [None]
